FAERS Safety Report 13321347 (Version 1)
Quarter: 2017Q1

REPORT INFORMATION
  Report Type: Spontaneous
  Country: US (occurrence: US)
  Receive Date: 20170310
  Receipt Date: 20170310
  Transmission Date: 20170428
  Serious: Yes (Hospitalization)
  Sender: FDA-Public Use
  Company Number: None

PATIENT
  Age: 71 Year
  Sex: Male

DRUGS (1)
  1. DILAUDID [Suspect]
     Active Substance: HYDROMORPHONE HYDROCHLORIDE
     Indication: ABDOMINAL PAIN
     Dosage: ?          OTHER FREQUENCY:X 1 DOSE;?
     Route: 040

REACTIONS (5)
  - Apnoea [None]
  - Hypopnoea [None]
  - Respiratory arrest [None]
  - Cyanosis [None]
  - Pulse absent [None]

NARRATIVE: CASE EVENT DATE: 20170305
